FAERS Safety Report 19452910 (Version 1)
Quarter: 2021Q2

REPORT INFORMATION
  Report Type: Report from Study
  Country: GB (occurrence: GB)
  Receive Date: 20210623
  Receipt Date: 20210623
  Transmission Date: 20210717
  Serious: Yes (Other)
  Sender: FDA-Public Use
  Company Number: GB-ACCORD-228981

PATIENT
  Age: 59 Year
  Sex: Female

DRUGS (53)
  1. LETROZOLE. [Suspect]
     Active Substance: LETROZOLE
     Indication: BREAST CANCER
     Dosage: 2.5
     Route: 048
     Dates: start: 201507, end: 20170427
  2. BENZYDAMINE [Concomitant]
     Active Substance: BENZYDAMINE
     Indication: STOMATITIS
     Dosage: 10
     Route: 061
     Dates: start: 20201121
  3. DENOSUMAB [Concomitant]
     Active Substance: DENOSUMAB
     Dosage: 120
     Route: 058
     Dates: start: 20180118
  4. DOXYCYCLINE. [Concomitant]
     Active Substance: DOXYCYCLINE
     Indication: PYREXIA
     Dosage: 100
     Route: 048
     Dates: start: 20180815
  5. IRON [Concomitant]
     Active Substance: IRON
     Indication: ANAEMIA
     Dosage: 200
     Route: 048
     Dates: start: 20200804
  6. HYOSCINE [Concomitant]
     Active Substance: SCOPOLAMINE
     Dosage: 10
     Route: 048
     Dates: start: 20181222
  7. AMOXICILLIN. [Concomitant]
     Active Substance: AMOXICILLIN
     Indication: OSTEOMYELITIS
     Route: 048
     Dates: start: 20170701, end: 20170706
  8. AMOXICILLIN. [Concomitant]
     Active Substance: AMOXICILLIN
     Route: 042
     Dates: start: 20191218, end: 20191219
  9. MAGNESIUM ASPARTATE/MAGNESIUM ASPARTATE HYDROCHLOR [Concomitant]
     Active Substance: MAGNESIUM ASPARTATE HYDROCHLORIDE
     Indication: HYPOMAGNESAEMIA
     Dosage: 6.5
     Route: 048
     Dates: start: 20191111
  10. EXEMESTANE. [Suspect]
     Active Substance: EXEMESTANE
     Indication: BREAST CANCER
     Dosage: 25
     Route: 048
     Dates: start: 20170428, end: 20180110
  11. TRASTUZUMAB. [Suspect]
     Active Substance: TRASTUZUMAB
     Indication: BREAST CANCER
     Dosage: 600
     Route: 058
     Dates: start: 20150716, end: 20171222
  12. LANSOPRAZOLE. [Concomitant]
     Active Substance: LANSOPRAZOLE
     Dosage: 15
     Route: 048
     Dates: start: 2001
  13. LEVOTHYROXINE. [Concomitant]
     Active Substance: LEVOTHYROXINE
     Indication: HYPOTHYROIDISM
     Dosage: 50
     Route: 048
     Dates: start: 20200311
  14. NAPROXEN. [Concomitant]
     Active Substance: NAPROXEN
     Dosage: 250
     Route: 048
  15. ZOMORPH [Concomitant]
     Active Substance: MORPHINE SULFATE
     Dosage: 30
     Route: 048
     Dates: start: 201611
  16. BUSCOPAN [Concomitant]
     Active Substance: BUTYLSCOPOLAMINE BROMIDE
     Indication: CONSTIPATION
     Dosage: 20
     Route: 048
     Dates: start: 20201205, end: 20201206
  17. AMOXICILLIN. [Concomitant]
     Active Substance: AMOXICILLIN
     Route: 048
     Dates: start: 20201024, end: 20201026
  18. AMOXICILLIN. [Concomitant]
     Active Substance: AMOXICILLIN
     Route: 042
     Dates: start: 20201121, end: 20201221
  19. LANSOPRAZOLE. [Concomitant]
     Active Substance: LANSOPRAZOLE
     Dosage: 30
     Route: 048
  20. ACIDEX [Concomitant]
     Indication: DYSPEPSIA
     Dosage: 15
     Route: 048
  21. TRASTUZUMAB/EMTANSINE [Suspect]
     Active Substance: ADO-TRASTUZUMAB EMTANSINE
     Indication: BREAST CANCER
     Dosage: 420
     Route: 042
     Dates: start: 20180118
  22. PROMETHAZINE [Concomitant]
     Active Substance: PROMETHAZINE HYDROCHLORIDE
     Dosage: 25
     Route: 048
  23. DIAZEPAM. [Concomitant]
     Active Substance: DIAZEPAM
     Indication: BACK PAIN
     Dosage: 2
     Route: 048
     Dates: start: 20180105
  24. AMOXICILLIN. [Concomitant]
     Active Substance: AMOXICILLIN
     Dosage: 500
     Route: 048
     Dates: start: 20201122, end: 20201127
  25. AMOXICILLIN. [Concomitant]
     Active Substance: AMOXICILLIN
     Indication: PYREXIA
     Dosage: 500
     Route: 048
     Dates: start: 20190414
  26. FUROSEMIDE. [Concomitant]
     Active Substance: FUROSEMIDE
     Indication: OEDEMA PERIPHERAL
     Dosage: 20
     Route: 048
     Dates: start: 20191113, end: 20191116
  27. FUROSEMIDE. [Concomitant]
     Active Substance: FUROSEMIDE
     Dosage: 40
     Route: 042
     Dates: start: 20200623, end: 20200626
  28. TINZAPARIN/TINZAPARIN SODIUM [Concomitant]
     Active Substance: TINZAPARIN SODIUM
     Indication: DEEP VEIN THROMBOSIS
     Route: 058
     Dates: start: 20190928
  29. PARACETAMOL [Concomitant]
     Active Substance: ACETAMINOPHEN
     Dosage: 500
     Route: 048
     Dates: start: 201504
  30. ACIDEX [Concomitant]
     Dosage: 10
     Route: 048
     Dates: start: 20201123, end: 20201209
  31. TINZAPARIN/TINZAPARIN SODIUM [Concomitant]
     Active Substance: TINZAPARIN SODIUM
     Route: 058
     Dates: start: 20200624, end: 20200624
  32. ACICLOVIR [Concomitant]
     Active Substance: ACYCLOVIR
     Indication: ORAL HERPES
     Route: 061
     Dates: start: 20161213, end: 20161218
  33. AMOXICILLIN. [Concomitant]
     Active Substance: AMOXICILLIN
     Route: 048
     Dates: start: 20191219, end: 20191221
  34. LISINOPRIL. [Concomitant]
     Active Substance: LISINOPRIL
     Dosage: 25
     Route: 048
     Dates: start: 20161110
  35. GLYCEROL [Concomitant]
     Active Substance: GLYCERIN
     Indication: CONSTIPATION
     Route: 065
     Dates: start: 20201210, end: 20201210
  36. AMOXICILLIN. [Concomitant]
     Active Substance: AMOXICILLIN
     Dosage: 1000
     Route: 048
     Dates: start: 20180701, end: 20180711
  37. DOXYCYCLINE. [Concomitant]
     Active Substance: DOXYCYCLINE
     Indication: PYREXIA
     Dosage: 100
     Route: 048
     Dates: start: 20200728, end: 20200728
  38. FUROSEMIDE. [Concomitant]
     Active Substance: FUROSEMIDE
     Dosage: 40
     Route: 048
     Dates: start: 20200626, end: 20201220
  39. FUROSEMIDE. [Concomitant]
     Active Substance: FUROSEMIDE
     Dosage: 40
     Route: 042
     Dates: start: 20200622, end: 20200623
  40. AMOXICILLIN. [Concomitant]
     Active Substance: AMOXICILLIN
     Route: 048
     Dates: start: 20191115, end: 20191118
  41. DIAZEPAM. [Concomitant]
     Active Substance: DIAZEPAM
     Indication: MUSCULOSKELETAL STIFFNESS
  42. SANDO?K [Concomitant]
     Indication: HYPOKALAEMIA
     Dosage: 2
     Route: 048
     Dates: start: 20201217, end: 20201221
  43. GABAPENTIN. [Concomitant]
     Active Substance: GABAPENTIN
     Dosage: 1.2
     Route: 048
  44. ACICLOVIR [Concomitant]
     Active Substance: ACYCLOVIR
     Indication: HERPES ZOSTER
     Dosage: 800
     Route: 048
     Dates: start: 20160727, end: 20160807
  45. AMOXICILLIN. [Concomitant]
     Active Substance: AMOXICILLIN
     Dosage: 1
     Route: 042
     Dates: start: 20191111, end: 20191115
  46. AMOXICILLIN. [Concomitant]
     Active Substance: AMOXICILLIN
     Dosage: 500
     Route: 048
     Dates: start: 20201026, end: 20201027
  47. FUROSEMIDE. [Concomitant]
     Active Substance: FUROSEMIDE
     Dosage: 40
     Route: 048
     Dates: start: 20191117
  48. MAGNESIUM ASPARTATE/MAGNESIUM ASPARTATE HYDROCHLOR [Concomitant]
     Active Substance: MAGNESIUM ASPARTATE HYDROCHLORIDE
     Route: 048
     Dates: start: 20201124, end: 20201125
  49. TRIMETHOPRIM. [Concomitant]
     Active Substance: TRIMETHOPRIM
     Indication: URINARY TRACT INFECTION
     Dosage: 200
     Route: 048
     Dates: start: 20201207, end: 20201210
  50. COLECALCIFEROL [Concomitant]
     Active Substance: CHOLECALCIFEROL
     Route: 048
     Dates: start: 20150827
  51. AMOXICILLIN. [Concomitant]
     Active Substance: AMOXICILLIN
     Route: 048
     Dates: start: 20200626, end: 20200628
  52. AMOXICILLIN. [Concomitant]
     Active Substance: AMOXICILLIN
     Route: 048
     Dates: start: 20200622, end: 20200626
  53. DOXYCYCLINE. [Concomitant]
     Active Substance: DOXYCYCLINE
     Route: 048
     Dates: start: 20200728, end: 20200728

REACTIONS (1)
  - Wound infection [Recovered/Resolved]

NARRATIVE: CASE EVENT DATE: 20201209
